FAERS Safety Report 13562283 (Version 3)
Quarter: 2017Q2

REPORT INFORMATION
  Report Type: Spontaneous
  Country: FR (occurrence: FR)
  Receive Date: 20170519
  Receipt Date: 20170523
  Transmission Date: 20170830
  Serious: Yes (Disabling, Other)
  Sender: FDA-Public Use
  Company Number: FR-ABBVIE-17K-056-1981137-00

PATIENT
  Age: 41 Year
  Sex: Female
  Weight: 69 kg

DRUGS (6)
  1. CELLCEPT [Concomitant]
     Active Substance: MYCOPHENOLATE MOFETIL\MYCOPHENOLATE MOFETIL HYDROCHLORIDE
     Indication: BIRDSHOT CHORIORETINOPATHY
     Route: 048
  2. DEXAMETHASONE TRANSTYMPANIC [Concomitant]
     Indication: BIRDSHOT CHORIORETINOPATHY
     Dates: start: 20170515, end: 20170515
  3. CORTANCYL [Concomitant]
     Active Substance: PREDNISONE
     Indication: BIRDSHOT CHORIORETINOPATHY
     Route: 048
     Dates: start: 201703, end: 20170512
  4. SOLU-MEDROL [Concomitant]
     Active Substance: METHYLPREDNISOLONE SODIUM SUCCINATE
     Indication: BIRDSHOT CHORIORETINOPATHY
     Route: 042
     Dates: start: 20170517
  5. HUMIRA [Suspect]
     Active Substance: ADALIMUMAB
     Indication: UVEITIS
     Route: 058
     Dates: start: 20170122
  6. PREDNISONE. [Concomitant]
     Active Substance: PREDNISONE
     Indication: BIRDSHOT CHORIORETINOPATHY
     Dates: start: 20170513, end: 20170516

REACTIONS (4)
  - Hypoaesthesia eye [Recovered/Resolved]
  - Sudden hearing loss [Not Recovered/Not Resolved]
  - Off label use [Unknown]
  - Sudden hearing loss [Not Recovered/Not Resolved]

NARRATIVE: CASE EVENT DATE: 20170507
